FAERS Safety Report 15624839 (Version 2)
Quarter: 2018Q4

REPORT INFORMATION
  Report Type: Spontaneous
  Country: SI (occurrence: SI)
  Receive Date: 20181116
  Receipt Date: 20181227
  Transmission Date: 20190205
  Serious: Yes (Other)
  Sender: FDA-Public Use
  Company Number: SI-AMGEN-SVNSP2018159698

PATIENT
  Age: 38 Year
  Sex: Male

DRUGS (4)
  1. PARSABIV [Suspect]
     Active Substance: ETELCALCETIDE HYDROCHLORIDE
     Indication: HYPERPARATHYROIDISM SECONDARY
     Dosage: 5 MG, 3W
     Route: 040
     Dates: end: 2017
  2. PARSABIV [Suspect]
     Active Substance: ETELCALCETIDE HYDROCHLORIDE
     Dosage: 2.5 MG, 3W
     Route: 040
     Dates: start: 201808
  3. PARSABIV [Suspect]
     Active Substance: ETELCALCETIDE HYDROCHLORIDE
     Dosage: 7.5 MG, 3W
     Route: 040
     Dates: start: 201801, end: 2018
  4. PARSABIV [Suspect]
     Active Substance: ETELCALCETIDE HYDROCHLORIDE
     Dosage: 5 MG, 3W
     Route: 040
     Dates: start: 201803, end: 201807

REACTIONS (1)
  - Adjusted calcium decreased [Unknown]

NARRATIVE: CASE EVENT DATE: 201803
